FAERS Safety Report 19980177 (Version 5)
Quarter: 2022Q1

REPORT INFORMATION
  Report Type: Spontaneous
  Country: US (occurrence: US)
  Receive Date: 20211021
  Receipt Date: 20220126
  Transmission Date: 20220423
  Serious: Yes (Other)
  Sender: FDA-Public Use
  Company Number: US-BAYER-2021A234114

PATIENT
  Age: 25 Year
  Sex: Male

DRUGS (8)
  1. KOVALTRY [Suspect]
     Active Substance: ANTIHEMOPHILIC FACTOR, HUMAN RECOMBINANT
     Dosage: 3285 IU
  2. KOVALTRY [Suspect]
     Active Substance: ANTIHEMOPHILIC FACTOR, HUMAN RECOMBINANT
     Dosage: 3285 IU
     Dates: start: 20210916, end: 20210916
  3. KOVALTRY [Suspect]
     Active Substance: ANTIHEMOPHILIC FACTOR, HUMAN RECOMBINANT
     Dosage: 3285 IU
     Dates: start: 20210924, end: 20210924
  4. KOVALTRY [Suspect]
     Active Substance: ANTIHEMOPHILIC FACTOR, HUMAN RECOMBINANT
     Dosage: 3285 IU
     Dates: start: 20211007, end: 20211007
  5. KOVALTRY [Suspect]
     Active Substance: ANTIHEMOPHILIC FACTOR, HUMAN RECOMBINANT
     Dosage: 3285 IU, TID, FOR THE RIGHT HIP BLEED TREATMENT
     Dates: start: 20211114
  6. KOVALTRY [Suspect]
     Active Substance: ANTIHEMOPHILIC FACTOR, HUMAN RECOMBINANT
     Dosage: 3285 IU, FOR  THE RIGHT PALM BLEED TREATMENT
     Dates: start: 20211118
  7. KOVALTRY [Suspect]
     Active Substance: ANTIHEMOPHILIC FACTOR, HUMAN RECOMBINANT
     Dosage: 1 DF, BID, FOR THE ELBOW BRUISE TREATMENT
     Dates: start: 20211208
  8. KOVALTRY [Suspect]
     Active Substance: ANTIHEMOPHILIC FACTOR, HUMAN RECOMBINANT
     Dosage: 1 DF, FOR THE LEFT HIP BLEED TREATMENT
     Dates: start: 20220113

REACTIONS (8)
  - Haemarthrosis [Recovered/Resolved]
  - Haemarthrosis [None]
  - Haemarthrosis [None]
  - Haemarthrosis [Recovered/Resolved]
  - Haemarthrosis [Recovered/Resolved]
  - Joint injury [None]
  - Contusion [Not Recovered/Not Resolved]
  - Haemarthrosis [None]

NARRATIVE: CASE EVENT DATE: 20210916
